FAERS Safety Report 8322082-7 (Version None)
Quarter: 2012Q2

REPORT INFORMATION
  Report Type: 
  Country: None (occurrence: None)
  Receive Date: 20120426
  Receipt Date: 20120418
  Transmission Date: 20120825
  Serious: Yes (Congenital Anomaly, Other)
  Sender: FDA-Public Use
  Company Number: GER/GER/12/0023991

PATIENT
  Sex: Male

DRUGS (9)
  1. FOLSAURE (FERRO-FOLSAN /00023601/) [Concomitant]
  2. MOVICAL (POLYETHYL. GLYC. W/POTAS. CHLOR./SOD. BICARB.) [Concomitant]
  3. LEVOTHYROXINE SODIUM [Concomitant]
  4. RENNIE (CALCIUM CARBONATE) [Concomitant]
  5. FLUOXETINE [Suspect]
     Indication: PRODUCT USED FOR UNKNOWN INDICATION
     Dosage: 20 MG (20 MG, 1 IN 1 D) TRANSPLACENTAL, 10 MG (10 MG, 1 IN 1 D) TRANSPLACENTAL
     Route: 064
     Dates: start: 20100130
  6. FLUOXETINE [Suspect]
     Indication: PRODUCT USED FOR UNKNOWN INDICATION
     Dosage: 20 MG (20 MG, 1 IN 1 D) TRANSPLACENTAL, 10 MG (10 MG, 1 IN 1 D) TRANSPLACENTAL
     Route: 064
     Dates: end: 20100817
  7. VALIUM [Concomitant]
  8. SEDACUR (SEDACUR) [Concomitant]
  9. ZOLPIDEM [Concomitant]

REACTIONS (6)
  - CAESAREAN SECTION [None]
  - INTRAVENTRICULAR HAEMORRHAGE [None]
  - TRANSPOSITION OF THE GREAT VESSELS [None]
  - SUPRAVENTRICULAR EXTRASYSTOLES [None]
  - ATRIAL FLUTTER [None]
  - FOETAL EXPOSURE DURING PREGNANCY [None]
